FAERS Safety Report 20237235 (Version 1)
Quarter: 2021Q4

REPORT INFORMATION
  Report Type: Spontaneous
  Country: US (occurrence: None)
  Receive Date: 20211227
  Receipt Date: 20211227
  Transmission Date: 20220303
  Serious: Yes (Other)
  Sender: FDA-Public Use
  Company Number: None

PATIENT
  Age: 14 Year
  Sex: Female
  Weight: 51.75 kg

DRUGS (1)
  1. QBREXZA [Suspect]
     Active Substance: GLYCOPYRRONIUM TOSYLATE
     Indication: Hyperhidrosis
     Dosage: OTHER QUANTITY : 1 1 WIPE;?FREQUENCY : AS NEEDED;?
     Route: 061
     Dates: start: 20211031, end: 20211213

REACTIONS (2)
  - Vision blurred [None]
  - Pupil fixed [None]

NARRATIVE: CASE EVENT DATE: 20211214
